FAERS Safety Report 8334824-5 (Version None)
Quarter: 2012Q2

REPORT INFORMATION
  Report Type: 
  Country: None (occurrence: None)
  Receive Date: 20120503
  Receipt Date: 20100816
  Transmission Date: 20120825
  Serious: No
  Sender: FDA-Public Use
  Company Number: US-TEVA-2010004351

PATIENT
  Sex: Female
  Weight: 85.352 kg

DRUGS (6)
  1. AMLODIPINE [Concomitant]
  2. KLONOPIN [Concomitant]
     Indication: ANXIETY
  3. NUVIGIL [Suspect]
     Indication: FIBROMYALGIA
     Dosage: 250 MILLIGRAM;
     Route: 048
     Dates: start: 20100506
  4. MIRTAZAPINE [Concomitant]
     Indication: DEPRESSION
     Dates: start: 20100101
  5. REMICADE [Concomitant]
     Indication: ARTHRITIS
     Dates: start: 20100401
  6. METHOTREXATE [Concomitant]
     Indication: ARTHRITIS
     Dates: start: 20090101

REACTIONS (1)
  - OEDEMA PERIPHERAL [None]
